FAERS Safety Report 6195039-2 (Version None)
Quarter: 2009Q2

REPORT INFORMATION
  Report Type: 
  Country: None (occurrence: None)
  Receive Date: 20090515
  Receipt Date: 20081020
  Transmission Date: 20091009
  Serious: Yes (Hospitalization)
  Sender: FDA-Public Use
  Company Number: 8010621

PATIENT
  Age: 84 Year
  Sex: Female

DRUGS (4)
  1. KEPPRA [Suspect]
     Indication: EPILEPSY
     Dosage: NI PO
     Route: 048
     Dates: start: 20020101
  2. KEPPRA [Suspect]
     Indication: EPILEPSY
     Dosage: 1500 MG PO
     Route: 048
     Dates: end: 20080201
  3. ERGENYL ^SANOFI-SYNTHELABO^ [Concomitant]
  4. HOMVIOTENSIN [Concomitant]

REACTIONS (5)
  - ANAEMIA [None]
  - DYSPLASIA [None]
  - GASTRITIS EROSIVE [None]
  - PLATELET COUNT DECREASED [None]
  - WHITE BLOOD CELL COUNT DECREASED [None]
